FAERS Safety Report 12525847 (Version 1)
Quarter: 2016Q3

REPORT INFORMATION
  Report Type: Spontaneous
  Country: US (occurrence: US)
  Receive Date: 20160705
  Receipt Date: 20160705
  Transmission Date: 20161109
  Serious: Yes (Hospitalization, Other)
  Sender: FDA-Public Use
  Company Number: US-SCIEGEN PHARMACEUTICALS INC-2016SCILIT00273

PATIENT
  Age: 82 Year
  Sex: Female

DRUGS (1)
  1. METFORMIN HYDROCHLORIDE TABLETS, USP [Suspect]
     Active Substance: METFORMIN HYDROCHLORIDE
     Indication: DIABETES MELLITUS
     Dosage: UNK
     Route: 065

REACTIONS (12)
  - Abdominal pain [Unknown]
  - Blood creatinine increased [None]
  - Renal replacement therapy [None]
  - Blood urea increased [None]
  - Confusional state [Unknown]
  - Nausea [Unknown]
  - Hypothermia [Unknown]
  - Anuria [Unknown]
  - Lactic acidosis [None]
  - Vomiting [Unknown]
  - Mental status changes [Unknown]
  - Metabolic acidosis [Recovering/Resolving]
